FAERS Safety Report 4366163-1 (Version None)
Quarter: 2004Q2

REPORT INFORMATION
  Report Type: 
  Country: None (occurrence: None)
  Receive Date: 20040524
  Receipt Date: 20040513
  Transmission Date: 20050107
  Serious: No
  Sender: FDA-Public Use
  Company Number: 04P-062-0254202-00

PATIENT
  Sex: Female

DRUGS (2)
  1. ERGENYL CHRONO TABLETS (DEPAKENE TABLETS) (VALPROATE SODIUM) (VALPROAT [Suspect]
     Dosage: ORAL
     Route: 048
     Dates: start: 20040101
  2. ANTIBIOTICS [Concomitant]

REACTIONS (2)
  - DIABETES INSIPIDUS [None]
  - POLYURIA [None]
